FAERS Safety Report 4563958-6 (Version None)
Quarter: 2005Q1

REPORT INFORMATION
  Report Type: 
  Country: None (occurrence: None)
  Receive Date: 20050121
  Receipt Date: 20050107
  Transmission Date: 20050727
  Serious: Yes (Hospitalization)
  Sender: FDA-Public Use
  Company Number: 2004116377

PATIENT
  Age: 90 Year
  Sex: Female

DRUGS (7)
  1. FELDENE [Suspect]
     Indication: PAIN
     Dosage: 20 MG (20 MG, 1 IN 1 D), INTRAMUSCULAR
     Route: 030
     Dates: start: 20040805, end: 20040820
  2. IRBESARTAN [Suspect]
     Indication: ESSENTIAL HYPERTENSION
     Dosage: ORAL
     Route: 048
     Dates: end: 20040820
  3. FUROSEMIDE [Suspect]
     Indication: ESSENTIAL HYPERTENSION
     Dosage: 40 MG (40 MG, 1 IN 1 D), ORAL
     Route: 048
  4. ALLOPURINOL [Concomitant]
  5. BETAHISTINE HYDROCHLORIDE (BETAHISTINE HYDROCHLORIDE) [Concomitant]
  6. APOREX (DEXTROPROPOXYPHENE HYDROCHLORIDE, PARACETAMOL) [Concomitant]
  7. OMEPRAZOLE [Concomitant]

REACTIONS (8)
  - ANAEMIA [None]
  - DRUG INTERACTION [None]
  - FALL [None]
  - GASTROINTESTINAL HAEMORRHAGE [None]
  - HIATUS HERNIA [None]
  - IRON DEFICIENCY ANAEMIA [None]
  - PAIN [None]
  - RENAL FAILURE ACUTE [None]
